FAERS Safety Report 5660283-7 (Version None)
Quarter: 2008Q1

REPORT INFORMATION
  Report Type: 
  Country: None (occurrence: None)
  Receive Date: 20080214
  Receipt Date: 20071118
  Transmission Date: 20080703
  Serious: No
  Sender: FDA-Public Use
  Company Number: WAES 0711USA03799

PATIENT
  Age: 60 Year
  Sex: Male

DRUGS (3)
  1. TAB ISENTRESS [Suspect]
     Indication: HIV INFECTION
     Dosage: 400 MG/BID/PO
     Route: 048
     Dates: start: 20071115
  2. COMBIVIR [Concomitant]
  3. VIREAD [Concomitant]

REACTIONS (8)
  - CHROMATURIA [None]
  - CLUMSINESS [None]
  - DIZZINESS [None]
  - FATIGUE [None]
  - HEADACHE [None]
  - INSOMNIA [None]
  - MALAISE [None]
  - NAUSEA [None]
